FAERS Safety Report 19673373 (Version 1)
Quarter: 2021Q3

REPORT INFORMATION
  Report Type: Report from Study
  Country: US (occurrence: US)
  Receive Date: 20210809
  Receipt Date: 20210809
  Transmission Date: 20211014
  Serious: Yes (Death, Other)
  Sender: FDA-Public Use
  Company Number: US-AUROBINDO-AUR-APL-2021-033492

PATIENT
  Sex: Female

DRUGS (1)
  1. KETAMINE HYDROCHLORIDE. [Suspect]
     Active Substance: KETAMINE HYDROCHLORIDE
     Indication: MENTAL STATUS CHANGES
     Dosage: 12 MILLIGRAM (0.5 MG/KG)
     Route: 042

REACTIONS (1)
  - Death [Fatal]
